FAERS Safety Report 12767546 (Version 19)
Quarter: 2019Q3

REPORT INFORMATION
  Report Type: Report from Study
  Country: CA (occurrence: CA)
  Receive Date: 20160921
  Receipt Date: 20190926
  Transmission Date: 20191004
  Serious: Yes (Hospitalization, Other)
  Sender: FDA-Public Use
  Company Number: CA-BRISTOL-MYERS SQUIBB COMPANY-BMS-2016-066054

PATIENT
  Age: 84 Year
  Sex: Female

DRUGS (3)
  1. TELMISARTAN. [Concomitant]
     Active Substance: TELMISARTAN
     Indication: PRODUCT USED FOR UNKNOWN INDICATION
     Route: 065
  2. ABATACEPT [Suspect]
     Active Substance: ABATACEPT
     Indication: RHEUMATOID ARTHRITIS
     Dosage: 750 MG, QMO
     Route: 042
     Dates: start: 20160711
  3. TYLENOL [Concomitant]
     Active Substance: ACETAMINOPHEN
     Indication: PRODUCT USED FOR UNKNOWN INDICATION
     Route: 065

REACTIONS (15)
  - Pain [Unknown]
  - Dyspnoea [Not Recovered/Not Resolved]
  - Joint swelling [Unknown]
  - Arthralgia [Unknown]
  - Blood pressure abnormal [Unknown]
  - Oedema peripheral [Recovering/Resolving]
  - Cataract [Recovering/Resolving]
  - Pneumonia [Not Recovered/Not Resolved]
  - Osteoarthritis [Unknown]
  - Cataract operation [Unknown]
  - Cardiac disorder [Unknown]
  - Heart rate irregular [Unknown]
  - Peripheral swelling [Recovering/Resolving]
  - Blood iron decreased [Recovering/Resolving]
  - Paraesthesia [Recovering/Resolving]

NARRATIVE: CASE EVENT DATE: 20160809
